FAERS Safety Report 25762750 (Version 1)
Quarter: 2025Q3

REPORT INFORMATION
  Report Type: Spontaneous
  Country: US (occurrence: None)
  Receive Date: 20250904
  Receipt Date: 20250904
  Transmission Date: 20251021
  Serious: No
  Sender: ALKERMES
  Company Number: US-ALKERMES INC.-ALK-2025-002320

PATIENT
  Age: 5 Decade
  Sex: Female

DRUGS (1)
  1. ARISTADA [Suspect]
     Active Substance: ARIPIPRAZOLE LAUROXIL
     Indication: Bipolar I disorder

REACTIONS (3)
  - Off label use [Unknown]
  - Pyrexia [Unknown]
  - Injection site mass [Unknown]

NARRATIVE: CASE EVENT DATE: 20250805
